FAERS Safety Report 6471443-X (Version None)
Quarter: 2009Q4

REPORT INFORMATION
  Report Type: 
  Country: None (occurrence: None)
  Receive Date: 20091201
  Receipt Date: 20091124
  Transmission Date: 20100525
  Serious: Yes (Other)
  Sender: FDA-Public Use
  Company Number: 2009S1008665

PATIENT
  Sex: Male

DRUGS (15)
  1. PHOSPHOSODA FLAVOR NOT SPECIFIED [Suspect]
     Indication: COLONOSCOPY
     Dosage: PO
     Route: 048
     Dates: start: 20010102, end: 20010102
  2. PHOSPHOSODA FLAVOR NOT SPECIFIED [Suspect]
     Indication: COLONOSCOPY
     Dosage: PO
     Route: 048
     Dates: start: 20030903, end: 20030903
  3. PHOSPHOSODA FLAVOR NOT SPECIFIED [Suspect]
     Indication: COLONOSCOPY
     Dosage: PO
     Route: 048
     Dates: start: 20050329
  4. CALCIUM [Concomitant]
  5. CAPSAICIN [Concomitant]
  6. CLOPIDOGREL BISULFATE [Concomitant]
  7. FOSINOPRIL SODIUM [Concomitant]
  8. GEMFIBROZIL [Concomitant]
  9. ISOSORBIDE [Concomitant]
  10. METOPROLOL [Concomitant]
  11. PENTOXIFYLLINE [Concomitant]
  12. ACIPHEX [Concomitant]
  13. SIMVASTATIN [Concomitant]
  14. TERAZOSIN HCL [Concomitant]
  15. BISCODYL [Concomitant]

REACTIONS (1)
  - RENAL FAILURE [None]
